FAERS Safety Report 7773894-X (Version None)
Quarter: 2011Q3

REPORT INFORMATION
  Report Type: 
  Country: None (occurrence: None)
  Receive Date: 20110923
  Receipt Date: 20110916
  Transmission Date: 20111222
  Serious: Yes (Other)
  Sender: FDA-Public Use
  Company Number: SE-PFIZER INC-2011221192

PATIENT
  Age: 25 Year
  Sex: Male

DRUGS (3)
  1. LYRICA [Suspect]
     Indication: ANXIETY
     Dosage: 600 MG, DAILY
     Route: 048
     Dates: start: 20090801
  2. ZOPICLONE [Concomitant]
     Dosage: UNK
  3. PROPAVAN [Concomitant]
     Dosage: 25 MG, UNK

REACTIONS (1)
  - DRUG ABUSE [None]
